FAERS Safety Report 9415342 (Version 3)
Quarter: 2013Q3

REPORT INFORMATION
  Report Type: Spontaneous
  Country: US (occurrence: US)
  Receive Date: 20130723
  Receipt Date: 20130829
  Transmission Date: 20140515
  Serious: No
  Sender: FDA-Public Use
  Company Number: US-PFIZER INC-2013212944

PATIENT
  Age: 46 Year
  Sex: Female
  Weight: 70.3 kg

DRUGS (3)
  1. LYRICA [Suspect]
     Indication: FIBROMYALGIA
     Dosage: 100 MG, 3X/DAY
     Route: 048
     Dates: end: 20130716
  2. VICODIN [Suspect]
     Indication: BACK PAIN
     Dosage: 750 MG, 2X/DAY
  3. VICODIN [Suspect]
     Indication: LUMBAR VERTEBRAL FRACTURE

REACTIONS (6)
  - Pain [Not Recovered/Not Resolved]
  - Insomnia [Unknown]
  - Agitation [Unknown]
  - Neuropathy peripheral [Not Recovered/Not Resolved]
  - Intentional drug misuse [Unknown]
  - Drug ineffective [Unknown]
